FAERS Safety Report 7652598-8 (Version None)
Quarter: 2011Q3

REPORT INFORMATION
  Report Type: 
  Country: None (occurrence: None)
  Receive Date: 20110803
  Receipt Date: 20110728
  Transmission Date: 20111222
  Serious: Yes (Hospitalization)
  Sender: FDA-Public Use
  Company Number: US-ABBOTT-11P-163-0842800-00

PATIENT
  Age: 53 Year
  Sex: Male

DRUGS (2)
  1. HUMIRA [Suspect]
     Indication: CROHN'S DISEASE
     Dates: start: 20110301
  2. HUMIRA [Suspect]
     Dates: start: 20110501

REACTIONS (4)
  - CROHN'S DISEASE [None]
  - POUCHITIS [None]
  - MALAISE [None]
  - PYREXIA [None]
